FAERS Safety Report 17844299 (Version 1)
Quarter: 2020Q2

REPORT INFORMATION
  Report Type: Spontaneous
  Country: PL (occurrence: PL)
  Receive Date: 20200601
  Receipt Date: 20200601
  Transmission Date: 20200714
  Serious: Yes (Other)
  Sender: FDA-Public Use
  Company Number: PL-SUN PHARMACEUTICAL INDUSTRIES LTD-2019RR-233024

PATIENT
  Age: 38 Year
  Sex: Female
  Weight: 60 kg

DRUGS (1)
  1. AXOTRET [Suspect]
     Active Substance: ISOTRETINOIN
     Indication: ACNE
     Dosage: 20 MILLIGRAM, DAILY, 1 CAPSULE
     Route: 048
     Dates: start: 20180823, end: 20190409

REACTIONS (2)
  - Flushing [Recovering/Resolving]
  - Carcinoid syndrome [Recovering/Resolving]

NARRATIVE: CASE EVENT DATE: 201906
